FAERS Safety Report 6562156-4 (Version None)
Quarter: 2010Q1

REPORT INFORMATION
  Report Type: 
  Country: None (occurrence: None)
  Receive Date: 20100130
  Receipt Date: 20091111
  Transmission Date: 20100710
  Serious: No
  Sender: FDA-Public Use
  Company Number: US-ABBOTT-09P-163-0603680-00

PATIENT
  Sex: Female

DRUGS (7)
  1. HUMIRA [Suspect]
     Indication: CROHN'S DISEASE
     Dosage: DAY 1
     Dates: start: 20091009
  2. HUMIRA [Suspect]
  3. 5-ASA [Concomitant]
     Indication: DRUG USE FOR UNKNOWN INDICATION
  4. MOBIC [Concomitant]
     Indication: DRUG USE FOR UNKNOWN INDICATION
  5. FOLIC ACID [Concomitant]
     Indication: DRUG USE FOR UNKNOWN INDICATION
  6. NEUROATIN [Concomitant]
     Indication: DRUG USE FOR UNKNOWN INDICATION
  7. SOMA [Concomitant]
     Indication: DRUG USE FOR UNKNOWN INDICATION

REACTIONS (6)
  - CROHN'S DISEASE [None]
  - FEELING ABNORMAL [None]
  - FIBROMYALGIA [None]
  - HEADACHE [None]
  - MALAISE [None]
  - NECK PAIN [None]
